FAERS Safety Report 10921267 (Version 1)
Quarter: 2015Q1

REPORT INFORMATION
  Report Type: Spontaneous
  Country: US (occurrence: None)
  Receive Date: 20150313
  Receipt Date: 20150313
  Transmission Date: 20150721
  Serious: Yes (Hospitalization)
  Sender: FDA-Public Use
  Company Number: None

PATIENT
  Age: 59 Year
  Sex: Male

DRUGS (1)
  1. CISPLATIN. [Suspect]
     Active Substance: CISPLATIN
     Dates: end: 20140715

REACTIONS (10)
  - Inflammation [None]
  - Abscess [None]
  - Splenic vein thrombosis [None]
  - Abdominal pain upper [None]
  - Hypoxia [None]
  - Chest discomfort [None]
  - Weight decreased [None]
  - Duodenal perforation [None]
  - Dyspnoea [None]
  - Pancreatitis [None]

NARRATIVE: CASE EVENT DATE: 20141223
